FAERS Safety Report 25281702 (Version 2)
Quarter: 2025Q2

REPORT INFORMATION
  Report Type: Spontaneous
  Country: IT (occurrence: IT)
  Receive Date: 20250508
  Receipt Date: 20250618
  Transmission Date: 20250716
  Serious: Yes (Hospitalization, Other)
  Sender: AUROBINDO
  Company Number: IT-DSJP-DS-2025-133664-IT

PATIENT
  Age: 69 Year
  Sex: Male

DRUGS (4)
  1. OLMESARTAN [Suspect]
     Active Substance: OLMESARTAN
     Indication: Hypertension
     Route: 065
  2. MEROPENEM [Concomitant]
     Active Substance: MEROPENEM
     Indication: Diverticulitis
     Route: 065
  3. MEROPENEM [Concomitant]
     Active Substance: MEROPENEM
     Indication: Antibiotic therapy
  4. RITUXIMAB [Concomitant]
     Active Substance: RITUXIMAB
     Indication: Chronic autoimmune glomerulonephritis
     Route: 065

REACTIONS (2)
  - Sprue-like enteropathy [Recovering/Resolving]
  - Gastrointestinal disorder [Recovering/Resolving]
